FAERS Safety Report 10227934 (Version 1)
Quarter: 2014Q2

REPORT INFORMATION
  Report Type: Spontaneous
  Country: FR (occurrence: FR)
  Receive Date: 20140610
  Receipt Date: 20140610
  Transmission Date: 20141212
  Serious: Yes (Hospitalization)
  Sender: FDA-Public Use
  Company Number: FR-ASTRAZENECA-2014SE39519

PATIENT
  Age: 803 Month
  Sex: Male

DRUGS (10)
  1. INEXIUM [Suspect]
     Route: 048
  2. XARELTO [Suspect]
     Route: 048
     Dates: start: 20140206, end: 20140326
  3. LASILIX [Suspect]
     Route: 048
     Dates: end: 20140326
  4. SEROPLEX [Suspect]
     Route: 048
  5. BEFIZAL SR [Concomitant]
     Route: 048
  6. DIFFU K [Concomitant]
  7. SOTALOL [Concomitant]
     Route: 048
  8. TARDYFERON [Concomitant]
     Route: 048
  9. AMLODIPINE [Concomitant]
     Route: 048
  10. SPECIAFOLDINE [Concomitant]

REACTIONS (6)
  - Inappropriate antidiuretic hormone secretion [Unknown]
  - Hyponatraemia [Recovering/Resolving]
  - Diarrhoea [Unknown]
  - Musculoskeletal pain [Unknown]
  - Decreased appetite [Unknown]
  - Weight decreased [Unknown]
